FAERS Safety Report 13693737 (Version 1)
Quarter: 2017Q2

REPORT INFORMATION
  Report Type: Spontaneous
  Country: JP (occurrence: JP)
  Receive Date: 20170627
  Receipt Date: 20170627
  Transmission Date: 20170830
  Serious: Yes (Hospitalization)
  Sender: FDA-Public Use
  Company Number: JP-SA-2017SA113414

PATIENT
  Age: 35 Year
  Sex: Female

DRUGS (5)
  1. TACROLIMUS. [Suspect]
     Active Substance: TACROLIMUS
     Indication: PROPHYLAXIS AGAINST GRAFT VERSUS HOST DISEASE
     Dosage: INFUSION
     Route: 065
  2. BUSULFAN. [Suspect]
     Active Substance: BUSULFAN
     Indication: BONE MARROW CONDITIONING REGIMEN
     Route: 065
  3. METHOTREXATE. [Suspect]
     Active Substance: METHOTREXATE
     Indication: PROPHYLAXIS AGAINST GRAFT VERSUS HOST DISEASE
     Dosage: DAY 1, 3, 6
     Route: 065
  4. FLUDARA [Suspect]
     Active Substance: FLUDARABINE PHOSPHATE
     Indication: BONE MARROW CONDITIONING REGIMEN
     Route: 065
  5. MELPHALAN. [Suspect]
     Active Substance: MELPHALAN
     Indication: BONE MARROW CONDITIONING REGIMEN
     Route: 065

REACTIONS (14)
  - Pyrexia [Recovering/Resolving]
  - Purpura [Recovering/Resolving]
  - Blood creatinine increased [Recovering/Resolving]
  - Sepsis [Recovering/Resolving]
  - Disseminated intravascular coagulation [Recovering/Resolving]
  - Blood bilirubin increased [Recovering/Resolving]
  - Blood lactate dehydrogenase increased [Recovering/Resolving]
  - Thrombotic microangiopathy [Recovering/Resolving]
  - Platelet count decreased [Recovering/Resolving]
  - Fibrin degradation products increased [Recovering/Resolving]
  - Weight increased [Recovered/Resolved]
  - Haemolysis [Recovering/Resolving]
  - Haemoglobin decreased [Recovering/Resolving]
  - Cytomegalovirus test positive [Unknown]
